FAERS Safety Report 6872942-9 (Version None)
Quarter: 2010Q3

REPORT INFORMATION
  Report Type: 
  Country: None (occurrence: None)
  Receive Date: 20100721
  Receipt Date: 20100712
  Transmission Date: 20110219
  Serious: Yes (Hospitalization, Other)
  Sender: FDA-Public Use
  Company Number: 20109027

PATIENT
  Age: 3 Year
  Sex: Male

DRUGS (1)
  1. LIORESAL [Suspect]
     Indication: MUSCLE SPASTICITY
     Dosage: 275 MCG, DAILY, INTRATHECAL
     Route: 037

REACTIONS (6)
  - BACTERIAL INFECTION [None]
  - HYPOTENSION [None]
  - IMPLANT SITE PUSTULES [None]
  - LUMBAR PUNCTURE ABNORMAL [None]
  - MUSCULOSKELETAL STIFFNESS [None]
  - PYREXIA [None]
